FAERS Safety Report 16196376 (Version 1)
Quarter: 2019Q2

REPORT INFORMATION
  Report Type: Spontaneous
  Country: US (occurrence: US)
  Receive Date: 20190311
  Receipt Date: 20190311
  Transmission Date: 20190711
  Serious: No
  Sender: FDA-Public Use
  Company Number: None

PATIENT
  Age: 48 Year
  Sex: Female

DRUGS (1)
  1. PREZCOBIX [Suspect]
     Active Substance: COBICISTAT\DARUNAVIR ETHANOLATE
     Route: 048
     Dates: start: 20180712

REACTIONS (8)
  - Drug interaction [None]
  - Therapy cessation [None]
  - Inability to afford medication [None]
  - Asthenia [None]
  - Rash generalised [None]
  - Oral candidiasis [None]
  - Fatigue [None]
  - Symptom recurrence [None]

NARRATIVE: CASE EVENT DATE: 20190311
